FAERS Safety Report 5300752-2 (Version None)
Quarter: 2007Q2

REPORT INFORMATION
  Report Type: 
  Country: None (occurrence: None)
  Receive Date: 20070418
  Receipt Date: 20070312
  Transmission Date: 20071010
  Serious: Yes (Other)
  Sender: FDA-Public Use
  Company Number: US-SANOFI-SYNTHELABO-A03200702570

PATIENT
  Sex: Female

DRUGS (13)
  1. WELLBUTRIN [Concomitant]
  2. XENICAL [Concomitant]
  3. PHEN-FEN [Concomitant]
  4. ATIVAN [Concomitant]
  5. FLEXERIL [Concomitant]
     Dosage: UNK
     Route: 048
     Dates: end: 20050101
  6. XANAX [Concomitant]
     Dosage: UNK
     Route: 048
     Dates: start: 19961001, end: 19980101
  7. ALBUTEROL [Concomitant]
     Route: 055
  8. ADVAIR DISKUS 100/50 [Concomitant]
     Dosage: UNK
     Route: 055
     Dates: start: 20060101
  9. ALLEGRA [Concomitant]
     Route: 048
  10. ELAVIL [Concomitant]
     Dosage: UNK
     Route: 048
  11. UROXAL [Concomitant]
     Dosage: UNK
     Route: 048
  12. ATENOLOL [Concomitant]
     Dosage: UNK
     Route: 048
  13. AMBIEN [Suspect]
     Indication: SLEEP DISORDER
     Route: 048
     Dates: start: 19971017, end: 20050301

REACTIONS (13)
  - AGGRESSION [None]
  - AMNESIA [None]
  - CONFUSIONAL STATE [None]
  - DEPENDENCE [None]
  - DEPRESSION [None]
  - DRUG INEFFECTIVE [None]
  - DRUG WITHDRAWAL SYNDROME [None]
  - EATING DISORDER [None]
  - HANGOVER [None]
  - MEDICATION ERROR [None]
  - ROAD TRAFFIC ACCIDENT [None]
  - SLEEP WALKING [None]
  - WEIGHT INCREASED [None]
